FAERS Safety Report 13942401 (Version 3)
Quarter: 2017Q3

REPORT INFORMATION
  Report Type: Spontaneous
  Country: US (occurrence: US)
  Receive Date: 20170906
  Receipt Date: 20170920
  Transmission Date: 20171127
  Serious: Yes (Other)
  Sender: FDA-Public Use
  Company Number: US-PFIZER INC-2017378716

PATIENT
  Age: 15 Month
  Sex: Male

DRUGS (1)
  1. EPIPEN JR [Suspect]
     Active Substance: EPINEPHRINE
     Dosage: UNK (1:1000 OF 0.15MG)
     Route: 047

REACTIONS (10)
  - Retinal tear [Unknown]
  - Eyelid haematoma [Unknown]
  - Accidental exposure to product by child [Unknown]
  - Tachycardia [Recovered/Resolved]
  - Injury corneal [Unknown]
  - Iris injury [Unknown]
  - Retinal haemorrhage [Unknown]
  - Mydriasis [Recovered/Resolved]
  - Conjunctival hyperaemia [Unknown]
  - Lens disorder [Unknown]
